FAERS Safety Report 13442857 (Version 1)
Quarter: 2017Q2

REPORT INFORMATION
  Report Type: Spontaneous
  Country: US (occurrence: US)
  Receive Date: 20170413
  Receipt Date: 20170413
  Transmission Date: 20170830
  Serious: Yes (Death, Hospitalization)
  Sender: FDA-Public Use
  Company Number: None

PATIENT
  Age: 68 Year
  Sex: Female

DRUGS (21)
  1. CREON [Concomitant]
     Active Substance: PANCRELIPASE AMYLASE\PANCRELIPASE LIPASE\PANCRELIPASE PROTEASE
  2. METOPROLOL TARTRATE. [Concomitant]
     Active Substance: METOPROLOL TARTRATE
  3. CYCLOBENZAPR [Concomitant]
     Active Substance: CYCLOBENZAPRINE
  4. NOVOLOG [Concomitant]
     Active Substance: INSULIN ASPART
  5. PROCHLORPER [Concomitant]
  6. OXYCODONE AND ACETAMINOPHEN [Concomitant]
     Active Substance: ACETAMINOPHEN\OXYCODONE HYDROCHLORIDE
  7. LASIX [Concomitant]
     Active Substance: FUROSEMIDE
  8. PROTONIX [Concomitant]
     Active Substance: PANTOPRAZOLE SODIUM
  9. ASPIRIN. [Concomitant]
     Active Substance: ASPIRIN
  10. VITAMIN D3 [Concomitant]
     Active Substance: CHOLECALCIFEROL
  11. XANAX [Concomitant]
     Active Substance: ALPRAZOLAM
  12. LORAZEPAM. [Concomitant]
     Active Substance: LORAZEPAM
  13. XIFAXAN [Suspect]
     Active Substance: RIFAXIMIN
     Indication: HEPATIC FAILURE
     Route: 048
     Dates: start: 20170314
  14. GRANISETRON [Concomitant]
     Active Substance: GRANISETRON
  15. ONDANSETRON [Concomitant]
     Active Substance: ONDANSETRON
  16. SYNTHROID [Concomitant]
     Active Substance: LEVOTHYROXINE SODIUM
  17. MORPHINE [Concomitant]
     Active Substance: MORPHINE
  18. ATROPINE. [Concomitant]
     Active Substance: ATROPINE
  19. TRESIBA [Concomitant]
     Active Substance: INSULIN DEGLUDEC
  20. ALDACTONE [Concomitant]
     Active Substance: SPIRONOLACTONE
  21. LACTULOSE. [Concomitant]
     Active Substance: LACTULOSE

REACTIONS (1)
  - Death [None]

NARRATIVE: CASE EVENT DATE: 201703
